FAERS Safety Report 6442315-1 (Version None)
Quarter: 2009Q4

REPORT INFORMATION
  Report Type: 
  Country: None (occurrence: None)
  Receive Date: 20091112
  Receipt Date: 20090618
  Transmission Date: 20100525
  Serious: Yes (Hospitalization)
  Sender: FDA-Public Use
  Company Number: DSJ-2009-07934

PATIENT
  Age: 67 Year
  Sex: Male
  Weight: 65 kg

DRUGS (9)
  1. OLMESARTAN MEDOXOMIL [Suspect]
     Indication: HYPERTENSION
     Dosage: 10 MG, (10 MG, 1 IN 1 D), PER ORAL
     Route: 048
     Dates: start: 20080411, end: 20090601
  2. CALBLOCK (AZELNIDIPINE) (TABLET) (AZELNIDIPINE) [Concomitant]
  3. AMARYL [Concomitant]
  4. PANALDINE (TICLOPIDINE HYDROCHLORIDE) (TABLET) (TICLOPIDINE HYDROCHLOR [Concomitant]
  5. CRESTOR (ROSUVASTATIN CALCIUM) (TABLET) (ROSUVASTATIN CALCIUM) [Concomitant]
  6. GASTER D (FAMOTIDINE) (TABLET) (FAMOTIDINE) [Concomitant]
  7. OLETAAL (CILOSTAZOL) (TABLET) (CILOSTAZOL) [Concomitant]
  8. ALOSENN (ACHILLEA MILLEFOLIUM, SENNA ALEXANDRINA LEAF, SENNA ALEXANDRI [Concomitant]
  9. PURSENNID (SENNA ALEXANDRINA LEAF) (TABLET) (SENNA ALEXANDRINA LEAF) [Concomitant]

REACTIONS (2)
  - CEREBRAL INFARCTION [None]
  - LOW DENSITY LIPOPROTEIN INCREASED [None]
